FAERS Safety Report 10176163 (Version 1)
Quarter: 2014Q2

REPORT INFORMATION
  Report Type: Spontaneous
  Country: US (occurrence: None)
  Receive Date: 20140515
  Receipt Date: 20140515
  Transmission Date: 20141212
  Serious: Yes (Hospitalization)
  Sender: FDA-Public Use
  Company Number: None

PATIENT
  Age: 67 Year
  Sex: Male

DRUGS (10)
  1. IMBRUVICA [Suspect]
     Indication: PRODUCT USED FOR UNKNOWN INDICATION
     Route: 048
     Dates: start: 20131231
  2. TIKOSYN [Concomitant]
  3. MEXILETINE [Concomitant]
  4. COREG [Concomitant]
  5. ALTATE [Concomitant]
  6. LIPITOR [Concomitant]
  7. SOLPALMETTO [Concomitant]
  8. COQN [Concomitant]
  9. ASPIRIN [Concomitant]
  10. ACYCLOVIR [Concomitant]

REACTIONS (2)
  - Infection [None]
  - Therapy cessation [None]
